FAERS Safety Report 18499118 (Version 4)
Quarter: 2021Q1

REPORT INFORMATION
  Report Type: Report from Study
  Country: US (occurrence: US)
  Receive Date: 20201113
  Receipt Date: 20210215
  Transmission Date: 20210419
  Serious: Yes (Death, Hospitalization)
  Sender: FDA-Public Use
  Company Number: US-ROCHE-2711014

PATIENT
  Age: 68 Year
  Sex: Male
  Weight: 104 kg

DRUGS (15)
  1. ATEZOLIZUMAB. [Suspect]
     Active Substance: ATEZOLIZUMAB
     Indication: SMALL CELL LUNG CANCER
     Dosage: ON 01/SEP/2020, SHE RECEIVED MOST RECENT DOSE OF ATEZOLIZUMAB 1200 MG
     Route: 042
     Dates: start: 20200518
  2. BUSPIRONE [Concomitant]
     Active Substance: BUSPIRONE HYDROCHLORIDE
  3. CETIRIZINE [Concomitant]
     Active Substance: CETIRIZINE HYDROCHLORIDE
  4. NITROGLYCERIN. [Concomitant]
     Active Substance: NITROGLYCERIN
  5. ALBUTEROL. [Concomitant]
     Active Substance: ALBUTEROL
  6. CISPLATIN. [Suspect]
     Active Substance: CISPLATIN
     Indication: SMALL CELL LUNG CANCER
     Dosage: ON 30/JUN/2020, HE RECEIVED MOST RECENT DOSE OF 390.4 MG ON DAY 1
     Route: 042
     Dates: start: 20200518
  7. ETOPOSIDE. [Suspect]
     Active Substance: ETOPOSIDE
     Indication: SMALL CELL LUNG CANCER
     Dosage: ON 02/JUL/2020, HE RECEIVED MOST RECENT DOSE OF ETOPOSIDE 1463.25 MG ON DAY 1?3
     Route: 042
     Dates: start: 20200518
  8. NYSTATIN. [Concomitant]
     Active Substance: NYSTATIN
  9. TIOTROPIUM [Concomitant]
     Active Substance: TIOTROPIUM
  10. ATORVASTATIN [Concomitant]
     Active Substance: ATORVASTATIN
  11. LIDOCAINE;PRILOCAINE [Concomitant]
  12. AMLODIPINE [Concomitant]
     Active Substance: AMLODIPINE BESYLATE
  13. OLANZAPINE. [Concomitant]
     Active Substance: OLANZAPINE
  14. ASPIRIN. [Concomitant]
     Active Substance: ASPIRIN
  15. METOPROLOL SUCCINATE. [Concomitant]
     Active Substance: METOPROLOL SUCCINATE

REACTIONS (3)
  - Pneumonitis [Fatal]
  - Hyponatraemia [Recovered/Resolved]
  - Atrial fibrillation [Unknown]

NARRATIVE: CASE EVENT DATE: 20200917
